FAERS Safety Report 8448301-4 (Version None)
Quarter: 2012Q2

REPORT INFORMATION
  Report Type: 
  Country: None (occurrence: None)
  Receive Date: 20120619
  Receipt Date: 20120615
  Transmission Date: 20120825
  Serious: Yes (Death, Hospitalization)
  Sender: FDA-Public Use
  Company Number: DE-ROCHE-1009730

PATIENT
  Age: 54 Year
  Sex: Male
  Weight: 88 kg

DRUGS (10)
  1. FENTANYL [Concomitant]
     Dosage: 25 UG/H/L/L
     Dates: start: 20111121
  2. PANTOPRAZOLE [Concomitant]
     Dates: start: 20111027
  3. FENTANYL [Concomitant]
     Dosage: 12 UG/H/L/L
     Dates: start: 20111017, end: 20111121
  4. DEXAMETHASONE SODIUM PHOSPHATE [Concomitant]
     Dates: start: 20111026, end: 20111121
  5. METAMIZOL [Concomitant]
     Dates: start: 20111017
  6. MOVIPREP [Concomitant]
     Dates: start: 20111017
  7. IBUPROFEN [Concomitant]
     Dates: start: 20111027, end: 20111122
  8. VEMURAFENIB [Suspect]
     Indication: METASTATIC MALIGNANT MELANOMA
     Dosage: LAST DOSE PRIOR TO SAE 01 NOV 2011
     Route: 048
     Dates: start: 20111101
  9. ZOPICLON [Concomitant]
     Dates: start: 20111025
  10. RESTEX [Concomitant]
     Dosage: 100/25 MG
     Dates: start: 20111025

REACTIONS (3)
  - ANAEMIA [None]
  - HYDROCEPHALUS [None]
  - GENERAL PHYSICAL HEALTH DETERIORATION [None]
